FAERS Safety Report 19620292 (Version 1)
Quarter: 2021Q3

REPORT INFORMATION
  Report Type: Other
  Country: CN (occurrence: CN)
  Receive Date: 20210728
  Receipt Date: 20210728
  Transmission Date: 20211014
  Serious: Yes (Other)
  Sender: FDA-Public Use
  Company Number: CN-ROCHE-2874093

PATIENT

DRUGS (2)
  1. BEVACIZUMAB. [Suspect]
     Active Substance: BEVACIZUMAB
     Indication: GLIOMA
     Route: 042
  2. TEMOZOLOMIDE. [Suspect]
     Active Substance: TEMOZOLOMIDE
     Indication: GLIOMA
     Route: 048

REACTIONS (11)
  - Myelosuppression [Unknown]
  - Fatigue [Unknown]
  - Pyrexia [Unknown]
  - Thrombocytopenia [Unknown]
  - Leukopenia [Unknown]
  - Diarrhoea [Unknown]
  - Anaemia [Unknown]
  - Epistaxis [Unknown]
  - Hypertension [Unknown]
  - Nausea [Unknown]
  - Vomiting [Unknown]
